FAERS Safety Report 4269489-5 (Version None)
Quarter: 2004Q1

REPORT INFORMATION
  Report Type: 
  Country: None (occurrence: None)
  Receive Date: 20040109
  Receipt Date: 20031230
  Transmission Date: 20041129
  Serious: Yes (Hospitalization)
  Sender: FDA-Public Use
  Company Number: 203897

PATIENT
  Age: 52 Year
  Sex: Female

DRUGS (5)
  1. HERCEPTIN [Suspect]
     Indication: BREAST CANCER
     Dosage: SEE IMAGE
     Route: 042
     Dates: start: 20030908, end: 20030908
  2. DOCETAXEL (DOCETAXEL) [Suspect]
     Indication: BREAST CANCER
     Dosage: 136 MG, Q3W, INTRAVENOUS
     Route: 042
     Dates: start: 20030902
  3. CARBOPLATIN [Suspect]
     Indication: BREAST CANCER
     Dosage: 630 MG, Q3W, INTRAVENOUS
     Route: 042
     Dates: start: 20030909
  4. DEXAMETHASONE [Concomitant]
  5. ZOFRAN [Concomitant]

REACTIONS (3)
  - FEBRILE NEUTROPENIA [None]
  - HAEMOGLOBIN DECREASED [None]
  - WHITE BLOOD CELL COUNT DECREASED [None]
